FAERS Safety Report 23883538 (Version 1)
Quarter: 2024Q2

REPORT INFORMATION
  Report Type: Spontaneous
  Country: PT (occurrence: None)
  Receive Date: 20240522
  Receipt Date: 20240522
  Transmission Date: 20240716
  Serious: Yes (Other)
  Sender: FDA-Public Use
  Company Number: PT-ROCHE-3566297

PATIENT
  Age: 16 Year

DRUGS (1)
  1. RISDIPLAM [Suspect]
     Active Substance: RISDIPLAM
     Indication: Spinal muscular atrophy
     Route: 065

REACTIONS (4)
  - Weight increased [Unknown]
  - Mechanical ventilation complication [Unknown]
  - Mobility decreased [Unknown]
  - Obstructive sleep apnoea syndrome [Not Recovered/Not Resolved]
